FAERS Safety Report 21412640 (Version 2)
Quarter: 2022Q4

REPORT INFORMATION
  Report Type: Spontaneous
  Country: JP (occurrence: JP)
  Receive Date: 20221005
  Receipt Date: 20221020
  Transmission Date: 20230112
  Serious: Yes (Other)
  Sender: FDA-Public Use
  Company Number: JP-shionogi-202211254_MUL_P_1

PATIENT
  Age: 30 Year
  Sex: Female

DRUGS (1)
  1. MULPLETA [Suspect]
     Active Substance: LUSUTROMBOPAG
     Indication: Thrombocytopenia
     Dosage: 3 MG, QD
     Route: 065

REACTIONS (1)
  - Disseminated intravascular coagulation [Recovering/Resolving]
